FAERS Safety Report 18777385 (Version 1)
Quarter: 2021Q1

REPORT INFORMATION
  Report Type: Other
  Country: US (occurrence: US)
  Receive Date: 20210122
  Receipt Date: 20210122
  Transmission Date: 20210419
  Serious: No
  Sender: FDA-Public Use
  Company Number: US-CHIESI USA INC.-2020STPI000463

PATIENT
  Sex: Male

DRUGS (1)
  1. REVCOVI [Suspect]
     Active Substance: ELAPEGADEMASE-LVLR
     Indication: COMBINED IMMUNODEFICIENCY
     Dosage: INJECT 0.2 MG PER KG (0.53 ML) INT BIW MONDAY AND THURSDAY
     Route: 030
     Dates: start: 20200721

REACTIONS (1)
  - Injection site mass [Unknown]
